FAERS Safety Report 10890087 (Version 1)
Quarter: 2015Q1

REPORT INFORMATION
  Report Type: Other
  Country: ES (occurrence: ES)
  Receive Date: 20150304
  Receipt Date: 20150304
  Transmission Date: 20150721
  Serious: No
  Sender: FDA-Public Use
  Company Number: ES-LUPIN PHARMACEUTICALS INC.-2015-00005

PATIENT
  Age: 3 Year

DRUGS (1)
  1. CEFIXIME. [Suspect]
     Active Substance: CEFIXIME
     Indication: PRODUCT USED FOR UNKNOWN INDICATION
     Dosage: 4-5 MG/KG/DOSE (TOTAL CUMULATIVE DOSE)
     Route: 065

REACTIONS (1)
  - Urticaria [Recovered/Resolved]
